FAERS Safety Report 18545273 (Version 2)
Quarter: 2020Q4

REPORT INFORMATION
  Report Type: Spontaneous
  Country: US (occurrence: US)
  Receive Date: 20201125
  Receipt Date: 20201208
  Transmission Date: 20210114
  Serious: No
  Sender: FDA-Public Use
  Company Number: US-LUPIN PHARMACEUTICALS INC.-2020-08892

PATIENT
  Age: 32 Year
  Sex: Female
  Weight: 54.42 kg

DRUGS (1)
  1. SOLOSEC [Suspect]
     Active Substance: SECNIDAZOLE
     Indication: BACTERIAL VAGINOSIS
     Dosage: 2 GRAM, QD
     Route: 048
     Dates: start: 20201107, end: 20201107

REACTIONS (5)
  - Vomiting [Recovered/Resolved]
  - Contraindicated product administered [Unknown]
  - Maternal exposure during breast feeding [Unknown]
  - Illness [Recovered/Resolved]
  - Contraindicated product prescribed [Unknown]

NARRATIVE: CASE EVENT DATE: 20201107
